FAERS Safety Report 7236645-3 (Version None)
Quarter: 2011Q1

REPORT INFORMATION
  Report Type: 
  Country: None (occurrence: None)
  Receive Date: 20110120
  Receipt Date: 20110112
  Transmission Date: 20110831
  Serious: Yes (Other)
  Sender: FDA-Public Use
  Company Number: NL-AMGEN-NLDSP2011002415

PATIENT

DRUGS (2)
  1. PACLITAXEL [Concomitant]
     Dosage: UNK
     Dates: start: 20101229
  2. NEULASTA [Suspect]
     Indication: CHEMOTHERAPY
     Dosage: 6 MG, UNK

REACTIONS (7)
  - MYALGIA [None]
  - INJECTION SITE SWELLING [None]
  - INJECTION SITE PRURITUS [None]
  - INJECTION SITE RASH [None]
  - BONE PAIN [None]
  - SYNCOPE [None]
  - INJECTION SITE ERYTHEMA [None]
